FAERS Safety Report 10644994 (Version 1)
Quarter: 2014Q4

REPORT INFORMATION
  Report Type: Spontaneous
  Country: US (occurrence: None)
  Receive Date: 20141209
  Receipt Date: 20141209
  Transmission Date: 20150529
  Serious: Yes (Death)
  Sender: FDA-Public Use
  Company Number: 14339ADE

PATIENT
  Age: 26 Year
  Sex: Male

DRUGS (3)
  1. NORVASC [Concomitant]
     Active Substance: AMLODIPINE BESYLATE
  2. DIOVAN [Concomitant]
     Active Substance: VALSARTAN
  3. THIOLA [Suspect]
     Active Substance: TIOPRONIN
     Indication: CYSTINURIA
     Dosage: THIOLA
     Dates: start: 20130212, end: 20131117

REACTIONS (2)
  - Treatment noncompliance [None]
  - Nephrolithiasis [None]
